FAERS Safety Report 6385672-7 (Version None)
Quarter: 2009Q4

REPORT INFORMATION
  Report Type: 
  Country: None (occurrence: None)
  Receive Date: 20091002
  Receipt Date: 20090105
  Transmission Date: 20100525
  Serious: No
  Sender: FDA-Public Use
  Company Number: US-ASTRAZENECA-2008UW22299

PATIENT
  Age: 65 Year
  Sex: Female
  Weight: 81.6 kg

DRUGS (14)
  1. ARIMIDEX [Suspect]
     Indication: BREAST CANCER FEMALE
     Route: 048
     Dates: start: 20080801, end: 20081101
  2. OMEPRAZOLE [Concomitant]
  3. NADOLOL [Concomitant]
  4. ASPIRIN [Concomitant]
     Dosage: 81 MG
  5. INSULIN [Concomitant]
  6. CITRICAL [Concomitant]
  7. VIT E [Concomitant]
  8. VIT B [Concomitant]
  9. ADVIL [Concomitant]
  10. TYLENOL ARTHRITIS STRENGTH [Concomitant]
  11. FUROSEMIDE [Concomitant]
  12. KLOR-CON [Concomitant]
  13. CEPHALEXIN [Concomitant]
  14. COD LIVER OIL [Concomitant]

REACTIONS (10)
  - BONE PAIN [None]
  - CARDIAC DISORDER [None]
  - DEPRESSION [None]
  - DIPLOPIA [None]
  - DYSPNOEA [None]
  - HEADACHE [None]
  - INSOMNIA [None]
  - MEMORY IMPAIRMENT [None]
  - PAIN IN EXTREMITY [None]
  - SWELLING [None]
